FAERS Safety Report 23172643 (Version 2)
Quarter: 2023Q4

REPORT INFORMATION
  Report Type: Spontaneous
  Country: US (occurrence: US)
  Receive Date: 20231110
  Receipt Date: 20231114
  Transmission Date: 20240110
  Serious: No
  Sender: FDA-Public Use
  Company Number: US-PFIZER INC-202300357994

PATIENT
  Age: 62 Year
  Sex: Female
  Weight: 74.84 kg

DRUGS (2)
  1. NIVESTYM [Suspect]
     Active Substance: FILGRASTIM-AAFI
     Indication: White blood cell count decreased
     Dosage: 300 UG, THE DAY AFTER CHEMO OR THE DAY BEFORE
  2. NIVESTYM [Suspect]
     Active Substance: FILGRASTIM-AAFI
     Indication: Ovarian cancer
     Dosage: 300 UG, EACH DAY FOR 3 DAYS BEFORE CHEMO

REACTIONS (2)
  - Drug ineffective [Unknown]
  - Off label use [Unknown]
